FAERS Safety Report 10511943 (Version 1)
Quarter: 2014Q4

REPORT INFORMATION
  Report Type: Spontaneous
  Country: MY (occurrence: MY)
  Receive Date: 20141010
  Receipt Date: 20141010
  Transmission Date: 20150528
  Serious: Yes (Death, Hospitalization)
  Sender: FDA-Public Use
  Company Number: MY-BAYER-2014-150424

PATIENT
  Age: 35 Year
  Sex: Female

DRUGS (1)
  1. NEXAVAR FILM-COATED TABLETS 200MG [Suspect]
     Active Substance: SORAFENIB
     Indication: RENAL CELL CARCINOMA
     Dosage: 400 MG, BID
     Route: 048

REACTIONS (2)
  - Ascites [None]
  - Death [Fatal]

NARRATIVE: CASE EVENT DATE: 20100726
